FAERS Safety Report 13448444 (Version 1)
Quarter: 2017Q2

REPORT INFORMATION
  Report Type: Report from Study
  Country: IL (occurrence: IL)
  Receive Date: 20170417
  Receipt Date: 20170417
  Transmission Date: 20170830
  Serious: Yes (Hospitalization)
  Sender: FDA-Public Use
  Company Number: IL-IPCA LABORATORIES LIMITED-IPC201704-000454

PATIENT

DRUGS (2)
  1. WARFARIN [Suspect]
     Active Substance: WARFARIN
  2. VITAMIN D [Suspect]
     Active Substance: CHOLECALCIFEROL

REACTIONS (2)
  - Portal vein thrombosis [Unknown]
  - Drug interaction [Unknown]
